FAERS Safety Report 12884144 (Version 4)
Quarter: 2020Q1

REPORT INFORMATION
  Report Type: Spontaneous
  Country: US (occurrence: US)
  Receive Date: 20161026
  Receipt Date: 20200330
  Transmission Date: 20200409
  Serious: No
  Sender: FDA-Public Use
  Company Number: US-PFIZER INC-2016496910

PATIENT
  Age: 64 Year
  Sex: Female

DRUGS (15)
  1. CRESTOR [Concomitant]
     Active Substance: ROSUVASTATIN CALCIUM
     Dosage: 10 MG, 1X/DAY
  2. CALCIUM +VIT D [Concomitant]
     Active Substance: CALCIUM\VITAMIN D
     Dosage: 600 MG, 2X/DAY
  3. CELEBREX [Concomitant]
     Active Substance: CELECOXIB
     Dosage: 200 MG, 1X/DAY
  4. TRAVATAN [Concomitant]
     Active Substance: TRAVOPROST
     Dosage: UNK UNK, DAILY
     Route: 047
  5. VITAMIN C [Concomitant]
     Active Substance: ASCORBIC ACID
     Dosage: 1000 MG, 1X/DAY
  6. IRON [Concomitant]
     Active Substance: IRON
     Dosage: 65 MG, 1X/DAY
  7. VITAMIN E /00110501/ [Concomitant]
     Active Substance: TOCOPHEROL
     Dosage: 1000 IU, 1X/DAY
  8. HYDROCODONE BITARTRATE AND ACETAMINOPHEN [Concomitant]
     Active Substance: ACETAMINOPHEN\HYDROCODONE BITARTRATE
     Dosage: UNK(HYDROCODONE BITARTRATE: 10MG )/ (PARACETAMOL:325MG ) (1 - 3XDAY)
  9. LYRICA [Suspect]
     Active Substance: PREGABALIN
     Dosage: UNK, 1X/DAY
  10. LYRICA [Suspect]
     Active Substance: PREGABALIN
     Dosage: 150 MG, 2X/DAY
     Route: 048
  11. TOVIAZ [Concomitant]
     Active Substance: FESOTERODINE FUMARATE
     Dosage: 8 MG, DAILY (1/2 TAB DAILY)
  12. FISH OIL [Concomitant]
     Active Substance: FISH OIL
     Dosage: 1000 MG, 2X/DAY
  13. FLONASE [Concomitant]
     Active Substance: FLUTICASONE PROPIONATE
     Dosage: 50 UG, UNK (1-2 X DAY)
  14. TIZANIDINE. [Concomitant]
     Active Substance: TIZANIDINE
     Dosage: 4 MG, UNK (1 - 2 X DAY)
  15. BIOTIN [Concomitant]
     Active Substance: BIOTIN
     Dosage: 1000 UG, 1X/DAY

REACTIONS (2)
  - Intentional product use issue [Unknown]
  - Malaise [Unknown]
